FAERS Safety Report 9664617 (Version 3)
Quarter: 2014Q2

REPORT INFORMATION
  Report Type: Spontaneous
  Country: US (occurrence: US)
  Receive Date: 20131101
  Receipt Date: 20140602
  Transmission Date: 20141212
  Serious: Yes (Hospitalization)
  Sender: FDA-Public Use
  Company Number: US-B.I. PHARMACEUTICALS,INC./RIDGEFIELD-2013-BI-34728BP

PATIENT
  Age: 53 Year
  Sex: Male
  Weight: 181 kg

DRUGS (8)
  1. PRADAXA [Suspect]
     Indication: ATRIAL FIBRILLATION
     Dosage: 150 MG
     Route: 048
     Dates: start: 20110810, end: 20130107
  2. DILTIAZEM [Concomitant]
     Indication: ATRIAL FIBRILLATION
     Route: 065
     Dates: start: 2004
  3. METOPROLOL [Concomitant]
     Indication: ATRIAL FIBRILLATION
     Dosage: 400 MG
     Route: 048
     Dates: start: 2004
  4. ALPRAZOLAM [Concomitant]
     Indication: ANXIETY
     Dosage: 1 MG
     Route: 048
  5. ASPIRIN [Concomitant]
     Dosage: 81 MG
     Route: 048
  6. OMEPRAZOLE [Concomitant]
     Route: 065
  7. ANTIBIOTICS [Concomitant]
     Route: 065
  8. Z-PAK [Concomitant]
     Route: 065

REACTIONS (3)
  - Gastrointestinal haemorrhage [Recovered/Resolved]
  - Haemorrhagic anaemia [Unknown]
  - Chest pain [Recovered/Resolved]
